FAERS Safety Report 19902671 (Version 1)
Quarter: 2021Q3

REPORT INFORMATION
  Report Type: Report from Study
  Country: US (occurrence: US)
  Receive Date: 20210930
  Receipt Date: 20210930
  Transmission Date: 20211014
  Serious: Yes (Hospitalization)
  Sender: FDA-Public Use
  Company Number: US-JNJFOC-20210941788

PATIENT
  Age: 39 Year
  Sex: Female

DRUGS (3)
  1. SPRAVATO [Suspect]
     Active Substance: ESKETAMINE
     Indication: DEPRESSION
     Dosage: 56 MG, 1 DOSE
     Dates: start: 20210727, end: 20210727
  2. SPRAVATO [Suspect]
     Active Substance: ESKETAMINE
     Dosage: 84 MG, 2 DOSES
     Dates: start: 20210729, end: 20210908
  3. SPRAVATO [Suspect]
     Active Substance: ESKETAMINE
     Dosage: 56 MG, 1 DOSE
     Dates: start: 20210916, end: 20210916

REACTIONS (4)
  - Chest pain [Unknown]
  - Heart rate increased [Unknown]
  - Syncope [Unknown]
  - Hypertension [Unknown]

NARRATIVE: CASE EVENT DATE: 20210916
